FAERS Safety Report 8383626 (Version 4)
Quarter: 2014Q1

REPORT INFORMATION
  Report Type: Spontaneous
  Country: US (occurrence: US)
  Receive Date: 20120123
  Receipt Date: 20140311
  Transmission Date: 20141002
  Serious: Yes (Death)
  Sender: FDA-Public Use
  Company Number: US-MERCK-1201USA02260

PATIENT
  Age: 17 Year
  Sex: Female

DRUGS (19)
  1. SINGULAIR [Suspect]
     Route: 048
  2. SODIUM CHLORIDE [Suspect]
     Route: 048
  3. ROSUVASTATIN CALCIUM [Suspect]
     Route: 048
  4. HYOSCYAMINE [Suspect]
     Route: 048
  5. HALOPERIDOL [Suspect]
     Route: 048
  6. PHENOL [Suspect]
     Route: 048
  7. LOPERAMIDE HYDROCHLORIDE [Suspect]
     Route: 048
  8. GUAIFENESIN [Suspect]
     Route: 048
  9. FLUOXETINE [Suspect]
     Indication: PRODUCT USED FOR UNKNOWN INDICATION
     Route: 048
  10. PSEUDOEPHEDRINE HYDROCHLORIDE [Suspect]
     Route: 048
  11. DEXTROMETHORPHAN [Suspect]
     Route: 048
  12. METHYLPHENIDATE [Suspect]
     Route: 048
  13. MAGNESIUM (UNSPECIFIED) [Suspect]
     Route: 048
  14. CITALOPRAM [Suspect]
     Route: 048
  15. NAPROXEN [Suspect]
     Route: 048
  16. IBUPROFEN [Suspect]
     Route: 048
  17. ACETAMINOPHEN (+) HYDROCODONE BITARTRATE [Suspect]
     Route: 048
  18. ALCOHOL [Suspect]
     Route: 048
  19. GASTROINTESTINAL PREPARATIONS (UNSPECIFIED) [Suspect]

REACTIONS (2)
  - Completed suicide [Fatal]
  - Toxicity to various agents [Fatal]
